FAERS Safety Report 17604901 (Version 1)
Quarter: 2020Q1

REPORT INFORMATION
  Report Type: Report from Study
  Country: GB (occurrence: GB)
  Receive Date: 20200331
  Receipt Date: 20200331
  Transmission Date: 20200409
  Serious: Yes (Other)
  Sender: FDA-Public Use
  Company Number: NVSC2020GB069796

PATIENT
  Sex: Female

DRUGS (1)
  1. HYRIMOZ [Suspect]
     Active Substance: ADALIMUMAB-ADAZ
     Indication: SPONDYLITIS
     Dosage: 0.8 ML, Q2W
     Route: 058
     Dates: start: 20200122

REACTIONS (4)
  - Nausea [Unknown]
  - Corona virus infection [Unknown]
  - Fatigue [Unknown]
  - Headache [Unknown]
